FAERS Safety Report 25120140 (Version 1)
Quarter: 2025Q1

REPORT INFORMATION
  Report Type: Spontaneous
  Country: US (occurrence: US)
  Receive Date: 20250325
  Receipt Date: 20250325
  Transmission Date: 20250409
  Serious: Yes (Hospitalization)
  Sender: PFIZER
  Company Number: US-PFIZER INC-PV202500035536

PATIENT
  Sex: Female

DRUGS (2)
  1. METHOTREXATE SODIUM [Suspect]
     Active Substance: METHOTREXATE SODIUM
  2. INPEFA [Suspect]
     Active Substance: SOTAGLIFLOZIN

REACTIONS (5)
  - Loss of consciousness [Unknown]
  - Urinary retention [Unknown]
  - Blister [Unknown]
  - Wound [Unknown]
  - Weight decreased [Unknown]
